FAERS Safety Report 4353736-5 (Version None)
Quarter: 2004Q2

REPORT INFORMATION
  Report Type: 
  Country: None (occurrence: None)
  Receive Date: 20040430
  Receipt Date: 20030620
  Transmission Date: 20050107
  Serious: Yes (Hospitalization)
  Sender: FDA-Public Use
  Company Number: 2003UW06960

PATIENT
  Age: 21 Year
  Sex: Female

DRUGS (3)
  1. NEXIUM [Suspect]
     Indication: GASTRITIS
     Dosage: 40 MG PO
     Route: 048
     Dates: start: 20030415, end: 20030430
  2. NEXIUM [Suspect]
     Indication: HIATUS HERNIA
     Dosage: 40 MG PO
     Route: 048
     Dates: start: 20030415, end: 20030430
  3. ATENOLOL [Concomitant]

REACTIONS (1)
  - HEADACHE [None]
